FAERS Safety Report 8446260-1 (Version None)
Quarter: 2012Q2

REPORT INFORMATION
  Report Type: 
  Country: None (occurrence: None)
  Receive Date: 20120618
  Receipt Date: 20120615
  Transmission Date: 20120825
  Serious: Yes (Other)
  Sender: FDA-Public Use
  Company Number: US-PFIZER INC-2012136511

PATIENT
  Sex: Male

DRUGS (2)
  1. PRISTIQ [Suspect]
     Dosage: 50 MG, DAILY
  2. VISTARIL [Suspect]
     Dosage: 50 MG, 3X/DAY AS NEEDED

REACTIONS (2)
  - IMPAIRED WORK ABILITY [None]
  - CEREBROVASCULAR ACCIDENT [None]
